FAERS Safety Report 5376495-6 (Version None)
Quarter: 2007Q2

REPORT INFORMATION
  Report Type: 
  Country: None (occurrence: None)
  Receive Date: 20070628
  Receipt Date: 20070615
  Transmission Date: 20071010
  Serious: Yes (Death, Other)
  Sender: FDA-Public Use
  Company Number: 200706AGG00653

PATIENT
  Age: 85 Year
  Sex: Male
  Weight: 73 kg

DRUGS (6)
  1. AGGRASTAT [Suspect]
     Indication: CARDIAC ENZYMES INCREASED
     Dates: start: 20070514
  2. AGGRASTAT [Suspect]
     Indication: ELECTROCARDIOGRAM ST SEGMENT DEPRESSION
     Dates: start: 20070514
  3. ASPIRIN [Concomitant]
  4. CLOPIDOGREL BISULFATE [Concomitant]
  5. HEPARIN [Concomitant]
  6. INSULIN [Concomitant]

REACTIONS (1)
  - MYOCARDIAL INFARCTION [None]
